FAERS Safety Report 24074514 (Version 1)
Quarter: 2024Q3

REPORT INFORMATION
  Report Type: Spontaneous
  Country: SE (occurrence: SE)
  Receive Date: 20240710
  Receipt Date: 20240710
  Transmission Date: 20241017
  Serious: Yes (Other)
  Sender: AMGEN
  Company Number: None

PATIENT
  Age: 61 Year
  Sex: Female

DRUGS (1)
  1. OTEZLA [Suspect]
     Active Substance: APREMILAST
     Indication: Psoriasis
     Dosage: 1 TABLET IN THE MORNING, 1 TABLET IN THE EVENING DOSE: FIRST
     Route: 048
     Dates: start: 20240411, end: 20240415

REACTIONS (6)
  - Haematochezia [Unknown]
  - Nausea [Unknown]
  - General physical health deterioration [Unknown]
  - Rhinorrhoea [Unknown]
  - Dizziness [Unknown]
  - Fatigue [Unknown]

NARRATIVE: CASE EVENT DATE: 20240413
